FAERS Safety Report 9847191 (Version 1)
Quarter: 2014Q1

REPORT INFORMATION
  Report Type: Spontaneous
  Country: GB (occurrence: GB)
  Receive Date: 20140127
  Receipt Date: 20140127
  Transmission Date: 20141002
  Serious: Yes (Other)
  Sender: FDA-Public Use
  Company Number: GB-ACTAVIS-2014-00646

PATIENT
  Age: 55 Year
  Sex: Male
  Weight: 91 kg

DRUGS (4)
  1. DICLOFENAC (UNKNOWN) [Suspect]
     Indication: OSTEOARTHRITIS
     Dosage: 50 MG, TID; AS REQUIRED.
     Route: 048
     Dates: start: 20130528, end: 20140106
  2. LANSOPRAZOLE [Concomitant]
     Indication: PRODUCT USED FOR UNKNOWN INDICATION
     Dosage: UNK
     Route: 065
  3. EPILIM [Concomitant]
     Indication: PRODUCT USED FOR UNKNOWN INDICATION
     Dosage: UNK
     Route: 065
  4. AMLODIPINE [Concomitant]
     Indication: PRODUCT USED FOR UNKNOWN INDICATION
     Dosage: UNK
     Route: 065

REACTIONS (2)
  - Acute myocardial infarction [Unknown]
  - Angina pectoris [Unknown]
